FAERS Safety Report 9173774 (Version 1)
Quarter: 2013Q1

REPORT INFORMATION
  Report Type: Spontaneous
  Country: US (occurrence: None)
  Receive Date: 20130318
  Receipt Date: 20130318
  Transmission Date: 20140127
  Serious: Yes (Death)
  Sender: FDA-Public Use
  Company Number: None

PATIENT
  Age: 64 Year
  Sex: Female
  Weight: 65.77 kg

DRUGS (1)
  1. AZITHROMYCIN 250 MG TEVA, USA [Suspect]
     Route: 048
     Dates: start: 20120120, end: 20120124

REACTIONS (1)
  - Heart rate increased [None]
